FAERS Safety Report 5713223-6 (Version None)
Quarter: 2008Q2

REPORT INFORMATION
  Report Type: 
  Country: None (occurrence: None)
  Receive Date: 20080422
  Receipt Date: 19970603
  Transmission Date: 20081010
  Serious: Yes (Death, Other)
  Sender: FDA-Public Use
  Company Number: US-ROCHE-81675

PATIENT
  Age: 38 Year
  Sex: Male

DRUGS (2)
  1. GANCICLOVIR SODIUM [Suspect]
     Route: 042
  2. NEUPOGEN [Concomitant]
     Indication: NEUTROPENIA
     Route: 042

REACTIONS (3)
  - DEATH [None]
  - SEPSIS [None]
  - SYNCOPE VASOVAGAL [None]
